FAERS Safety Report 14331132 (Version 1)
Quarter: 2017Q4

REPORT INFORMATION
  Report Type: Spontaneous
  Country: GB (occurrence: GB)
  Receive Date: 20171228
  Receipt Date: 20171228
  Transmission Date: 20180321
  Serious: Yes (Disabling, Other)
  Sender: FDA-Public Use
  Company Number: GB-DEXPHARM-20171929

PATIENT
  Age: 73 Year
  Sex: Female

DRUGS (1)
  1. ISOSORBIDE MONONITRATE. [Suspect]
     Active Substance: ISOSORBIDE MONONITRATE
     Dosage: MORNING AND AFTERNOON. IS NO LONGER TAKING 2 A DAY.

REACTIONS (1)
  - Dyspnoea [Not Recovered/Not Resolved]
